FAERS Safety Report 6312043-1 (Version None)
Quarter: 2009Q3

REPORT INFORMATION
  Report Type: 
  Country: None (occurrence: None)
  Receive Date: 20090817
  Receipt Date: 20090811
  Transmission Date: 20100115
  Serious: Yes (Disabling, Other)
  Sender: FDA-Public Use
  Company Number: US-ASTRAZENECA-2009SE07652

PATIENT
  Age: 54 Year
  Sex: Female

DRUGS (7)
  1. SEROQUEL [Suspect]
     Indication: DEPRESSION
     Route: 048
     Dates: start: 20090704
  2. SEROQUEL [Suspect]
     Route: 048
  3. PEG INTERFERON A2A [Suspect]
     Indication: HEPATITIS C VIRUS TEST
     Route: 058
     Dates: start: 20081006
  4. RIBAVIRIN [Suspect]
     Indication: HEPATITIS C VIRUS TEST
     Route: 065
     Dates: start: 20081006
  5. DOXYCYCLINE [Suspect]
     Indication: DRUG USE FOR UNKNOWN INDICATION
     Route: 065
     Dates: start: 20090217
  6. METOPROLOL TARTRATE [Concomitant]
     Indication: BLOOD PRESSURE
  7. LEVOTHYROXINE [Concomitant]

REACTIONS (26)
  - ANXIETY [None]
  - BRONCHITIS [None]
  - COUGH [None]
  - DECREASED APPETITE [None]
  - DEPRESSION [None]
  - DRY SKIN [None]
  - DYSGEUSIA [None]
  - DYSPNOEA [None]
  - FATIGUE [None]
  - HAIR DISORDER [None]
  - HERPES ZOSTER [None]
  - HYPOAESTHESIA [None]
  - HYPOTHYROIDISM [None]
  - MALAISE [None]
  - NAUSEA [None]
  - PHOTOPHOBIA [None]
  - PHOTOSENSITIVITY REACTION [None]
  - PRURITUS [None]
  - PYREXIA [None]
  - RASH ERYTHEMATOUS [None]
  - SKIN FISSURES [None]
  - SOMNOLENCE [None]
  - STOMATITIS [None]
  - VISUAL IMPAIRMENT [None]
  - WEIGHT DECREASED [None]
  - WHITE BLOOD CELL COUNT DECREASED [None]
